FAERS Safety Report 4301701-6 (Version None)
Quarter: 2004Q1

REPORT INFORMATION
  Report Type: 
  Country: None (occurrence: None)
  Receive Date: 20040219
  Receipt Date: 20040206
  Transmission Date: 20041129
  Serious: Yes (Other)
  Sender: FDA-Public Use
  Company Number: US-JNJFOC-20040201729

PATIENT

DRUGS (1)
  1. REMICADE [Suspect]
     Indication: IRRITABLE BOWEL SYNDROME
     Dosage: INTRAVENOUS
     Route: 042

REACTIONS (1)
  - RHEUMATOID ARTHRITIS [None]
